FAERS Safety Report 7257935 (Version 10)
Quarter: 2012Q4

REPORT INFORMATION
  Report Type: 
  Country: US (occurrence: US)
  Receive Date: 20091201
  Receipt Date: 20120917
  Transmission Date: 20130627
  Serious: Yes (Hospitalization, Other)
  Sender: FDA-Public Use
  Company Number: US-009507513-2009SP021070

PATIENT

DRUGS (3)
  1. NUVARING [Suspect]
     Indication: CONTRACEPTION
     Dates: start: 20050525, end: 200605
  2. NEURONTIN [Concomitant]
     Indication: PAIN IN EXTREMITY
     Dosage: 800 mg, TID
     Route: 048
  3. AMITRIPTYLINE HYDROCHLORIDE [Concomitant]
     Indication: PAIN IN EXTREMITY
     Dosage: 25 mg, hs
     Route: 048

REACTIONS (44)
  - Peripheral artery thrombosis [Unknown]
  - Cholecystitis [Recovered/Resolved]
  - Multiple sclerosis [Unknown]
  - Anxiety [Unknown]
  - Vulval disorder [Unknown]
  - Cerebral cyst [Unknown]
  - Acute myocardial infarction [Unknown]
  - Peripheral vascular disorder [Unknown]
  - Chest pain [Unknown]
  - Antiphospholipid syndrome [Unknown]
  - Dyspnoea [Unknown]
  - Deep vein thrombosis [Unknown]
  - Abortion spontaneous [Unknown]
  - Coronary artery disease [Unknown]
  - Carotid artery stent insertion [Unknown]
  - Sleep apnoea syndrome [Unknown]
  - Hypnopompic hallucination [Unknown]
  - Acne [Unknown]
  - Hidradenitis [Unknown]
  - Product quality issue [None]
  - Pain [None]
  - Alcohol use [None]
  - Peripheral arterial occlusive disease [None]
  - Surgical failure [None]
  - Protein S deficiency [None]
  - Hypoaesthesia [None]
  - Impaired work ability [None]
  - Pregnancy [None]
  - Maternal exposure before pregnancy [None]
  - Retained placenta or membranes [None]
  - Anaemia [None]
  - Ectopic pregnancy [None]
  - Abortion induced [None]
  - Palpitations [None]
  - Sinus tachycardia [None]
  - Supraventricular extrasystoles [None]
  - Eustachian tube dysfunction [None]
  - Deafness [None]
  - Oropharyngeal pain [None]
  - Gallbladder necrosis [None]
  - Hepatitis C antibody positive [None]
  - Coagulation factor IX level increased [None]
  - International normalised ratio abnormal [None]
  - Herpes virus infection [None]
